FAERS Safety Report 10201084 (Version 2)
Quarter: 2014Q2

REPORT INFORMATION
  Report Type: Spontaneous
  Country: US (occurrence: US)
  Receive Date: 20140528
  Receipt Date: 20140605
  Transmission Date: 20141212
  Serious: No
  Sender: FDA-Public Use
  Company Number: US-009507513-1405USA007497

PATIENT
  Age: 69 Year
  Sex: Female
  Weight: 52.61 kg

DRUGS (1)
  1. OXYTROL FOR WOMEN [Suspect]
     Indication: HYPERTONIC BLADDER
     Dosage: UNKNOWN
     Route: 062
     Dates: start: 201403, end: 20140313

REACTIONS (1)
  - Drug ineffective [Unknown]
